FAERS Safety Report 19416611 (Version 1)
Quarter: 2021Q2

REPORT INFORMATION
  Report Type: Spontaneous
  Country: FR (occurrence: FR)
  Receive Date: 20210614
  Receipt Date: 20210614
  Transmission Date: 20210717
  Serious: Yes (Hospitalization, Other)
  Sender: FDA-Public Use
  Company Number: FR-PFIZER INC-2021637921

PATIENT
  Age: 21 Year
  Sex: Male

DRUGS (4)
  1. SKENAN [Suspect]
     Active Substance: MORPHINE SULFATE
     Dosage: 800 MG, 1X/DAY
     Route: 042
     Dates: start: 202005
  2. CANNABIS [Suspect]
     Active Substance: CANNABIS SATIVA SUBSP. INDICA TOP
     Dosage: 20 DF, 1X/DAY
     Route: 055
  3. ALPRAZOLAM. [Suspect]
     Active Substance: ALPRAZOLAM
     Dosage: 1 DF, SINGLE
     Route: 054
     Dates: start: 20210521
  4. COCAINE [Suspect]
     Active Substance: COCAINE
     Dosage: 4 G, WEEKLY
     Route: 042
     Dates: start: 202105

REACTIONS (2)
  - Abscess [Recovering/Resolving]
  - Drug abuse [Not Recovered/Not Resolved]

NARRATIVE: CASE EVENT DATE: 202105
